FAERS Safety Report 8926871 (Version 2)
Quarter: 2013Q1

REPORT INFORMATION
  Report Type: Spontaneous
  Country: US (occurrence: US)
  Receive Date: 20121127
  Receipt Date: 20130312
  Transmission Date: 20140127
  Serious: Yes (Hospitalization)
  Sender: FDA-Public Use
  Company Number: US-INCYTE CORPORATION-2012IN002368

PATIENT
  Sex: Female
  Weight: 86 kg

DRUGS (9)
  1. JAKAFI [Suspect]
     Indication: MYELOFIBROSIS
     Dosage: 15 MG, BID
     Route: 048
     Dates: start: 20120206
  2. JAKAFI [Suspect]
     Dosage: 20 MG, BID
     Route: 048
  3. TOPROL XL [Concomitant]
  4. AMLODIPINE [Concomitant]
  5. LEVOTHYROXINE [Concomitant]
  6. ARANESP [Concomitant]
  7. CLONIDINE [Concomitant]
  8. VITAMIN D [Concomitant]
  9. PACERONE [Concomitant]

REACTIONS (3)
  - Atrial fibrillation [Recovering/Resolving]
  - Blood pressure increased [Recovering/Resolving]
  - Malaise [Unknown]
